FAERS Safety Report 4875626-1 (Version None)
Quarter: 2006Q1

REPORT INFORMATION
  Report Type: 
  Country: None (occurrence: None)
  Receive Date: 20060105
  Receipt Date: 20051230
  Transmission Date: 20060701
  Serious: Yes (Hospitalization, Disabling)
  Sender: FDA-Public Use
  Company Number: 2005092024

PATIENT
  Age: 76 Year
  Sex: Female

DRUGS (7)
  1. NITROGLYCERIN [Suspect]
     Indication: ILL-DEFINED DISORDER
     Dosage: AS NECESSARY, SUBLINGUAL
     Route: 060
  2. PANTOPRAZOLE SODIUM [Concomitant]
  3. ASPIRIN [Concomitant]
  4. OMEPRAZOLE [Concomitant]
  5. PRAVASTATIN [Concomitant]
  6. BISOPROLOL (BISOPROLOL) [Concomitant]
  7. NITRODERM [Concomitant]

REACTIONS (14)
  - BURNING SENSATION [None]
  - CARDIAC FUNCTION TEST ABNORMAL [None]
  - COMA [None]
  - DEAFNESS [None]
  - DIABETES MELLITUS [None]
  - DIZZINESS [None]
  - EXTERNAL EAR DISORDER [None]
  - FALL [None]
  - GAIT DISTURBANCE [None]
  - HAIR DISORDER [None]
  - HEADACHE [None]
  - INNER EAR DISORDER [None]
  - UNEVALUABLE EVENT [None]
  - WHEELCHAIR USER [None]
